APPROVED DRUG PRODUCT: LAMISIL
Active Ingredient: TERBINAFINE HYDROCHLORIDE
Strength: 1%
Dosage Form/Route: SOLUTION;TOPICAL
Application: N020749 | Product #001
Applicant: KARO HEALTHCARE INC
Approved: Oct 17, 1997 | RLD: No | RS: No | Type: DISCN